FAERS Safety Report 15632470 (Version 1)
Quarter: 2018Q4

REPORT INFORMATION
  Report Type: Spontaneous
  Country: US (occurrence: US)
  Receive Date: 20181119
  Receipt Date: 20181119
  Transmission Date: 20190205
  Serious: Yes (Other)
  Sender: FDA-Public Use
  Company Number: US-GLAXOSMITHKLINE-US2018207311

PATIENT
  Age: 71 Year
  Sex: Female

DRUGS (1)
  1. SENSODYNE REPAIR AND PROTECT WHITENING [Suspect]
     Active Substance: STANNOUS FLUORIDE
     Indication: SENSITIVITY OF TEETH
     Dosage: UNK
     Route: 004

REACTIONS (10)
  - Anaphylactic reaction [Recovering/Resolving]
  - Swollen tongue [Recovering/Resolving]
  - Lip swelling [Recovering/Resolving]
  - Erythema [Recovering/Resolving]
  - Gingival swelling [Recovering/Resolving]
  - Swelling face [Recovering/Resolving]
  - Oral disorder [Recovering/Resolving]
  - Lip erythema [Recovering/Resolving]
  - Tongue erythema [Recovering/Resolving]
  - Gingival erythema [Recovering/Resolving]
